FAERS Safety Report 5049065-7 (Version None)
Quarter: 2006Q3

REPORT INFORMATION
  Report Type: 
  Country: None (occurrence: None)
  Receive Date: 20060712
  Receipt Date: 20060628
  Transmission Date: 20061208
  Serious: Yes (Other)
  Sender: FDA-Public Use
  Company Number: US-BRISTOL-MYERS SQUIBB COMPANY-13434790

PATIENT

DRUGS (1)
  1. KENALOG-40 [Suspect]
     Indication: RETINAL OEDEMA
     Route: 031

REACTIONS (1)
  - EYE INFLAMMATION [None]
